FAERS Safety Report 5286886-X (Version None)
Quarter: 2007Q1

REPORT INFORMATION
  Report Type: 
  Country: None (occurrence: None)
  Receive Date: 20070329
  Receipt Date: 20070320
  Transmission Date: 20070707
  Serious: Yes (Death)
  Sender: FDA-Public Use
  Company Number: 2007US000450

PATIENT
  Age: 51 Year
  Sex: Male
  Weight: 90.2 kg

DRUGS (26)
  1. PROGRAF [Suspect]
     Indication: PROPHYLAXIS AGAINST TRANSPLANT REJECTION
     Dosage: 1 MG, BID, ORAL
     Route: 048
     Dates: start: 20050309, end: 20061103
  2. IMURAN [Concomitant]
  3. AMBIEN [Concomitant]
  4. PREDNISONE (PREDNISONE ACETATE) TABLET [Concomitant]
  5. KLONOPIN [Concomitant]
  6. NASONEX (MOMETASONE FUROATE) NASAL SPRAY [Concomitant]
  7. SEROQUEL TABLET [Concomitant]
  8. PROVIGIL [Concomitant]
  9. NEURONTIN [Concomitant]
  10. ZOLOFT [Concomitant]
  11. AFRIN NASAL DECONGESANT (PHENYLEPHRINE HYDROCHLORIDE) NASAL DROP [Concomitant]
  12. SALINE (SODIUM CHLORIDE) SPRAY [Concomitant]
  13. CARDIZEM CD (DILTIAZEM HYDROCHLORIDE) SUSTAINED RELEASE TABLET [Concomitant]
  14. FLORINEF ACETATE (FLUDROCORTISONE ACETATE) TABLET [Concomitant]
  15. COLACE (DOCUSATE SODIUM) CAPSULE [Concomitant]
  16. CALCIUM CARBONATE W/VITAMIN D NOS (VITAMIN D NOS) TABLET [Concomitant]
  17. LIPITOR [Concomitant]
  18. SPORANOX (ITRACONAZOLE) CAPSULE [Concomitant]
  19. ZINC SULFATE (ZINC SULFATE) CAPSULE [Concomitant]
  20. REGLAN [Concomitant]
  21. MULTIVITAMIN (VITAMINS NOS) TABLET [Concomitant]
  22. FOLIC ACID [Concomitant]
  23. FERROUS SULFATE (FERROUS SULFATE) TABLET [Concomitant]
  24. ASPIRIN CHEWABLE TABLET [Concomitant]
  25. NYSTATIN (NYSTATIN) SUSPENSION [Concomitant]
  26. RANITIDINE HYDROCHLORIDE (RANITIDINE HYDROCHLORIDE) TABLET [Concomitant]

REACTIONS (11)
  - ABDOMINAL DISTENSION [None]
  - BACK PAIN [None]
  - CHEST PAIN [None]
  - CHILLS [None]
  - LACRIMATION INCREASED [None]
  - NASAL CONGESTION [None]
  - PYREXIA [None]
  - RESPIRATORY ARREST [None]
  - RHINORRHOEA [None]
  - UMBILICAL HERNIA [None]
  - URINE OUTPUT DECREASED [None]
